FAERS Safety Report 10702578 (Version 6)
Quarter: 2015Q3

REPORT INFORMATION
  Report Type: Report from Study
  Country: US (occurrence: US)
  Receive Date: 20150109
  Receipt Date: 20150915
  Transmission Date: 20151125
  Serious: Yes (Hospitalization)
  Sender: FDA-Public Use
  Company Number: US-ALEXION PHARMACEUTICALS INC-A201500014

PATIENT

DRUGS (1)
  1. SOLIRIS [Suspect]
     Active Substance: ECULIZUMAB
     Indication: HAEMOLYTIC URAEMIC SYNDROME
     Dosage: UNK
     Route: 042

REACTIONS (12)
  - Condition aggravated [Unknown]
  - Haemoglobin abnormal [Not Recovered/Not Resolved]
  - Appetite disorder [Recovered/Resolved]
  - Nasopharyngitis [Unknown]
  - Hiatus hernia [Unknown]
  - Influenza [Unknown]
  - Platelet count decreased [Recovering/Resolving]
  - Polyp [Unknown]
  - Blood pressure decreased [Unknown]
  - Nausea [Not Recovered/Not Resolved]
  - Blood creatinine increased [Unknown]
  - Diarrhoea [Not Recovered/Not Resolved]

NARRATIVE: CASE EVENT DATE: 20150102
